FAERS Safety Report 7011420-3 (Version None)
Quarter: 2010Q3

REPORT INFORMATION
  Report Type: 
  Country: None (occurrence: None)
  Receive Date: 20100923
  Receipt Date: 20090310
  Transmission Date: 20110219
  Serious: No
  Sender: FDA-Public Use
  Company Number: US-WYE-H07649509

PATIENT
  Sex: Female
  Weight: 63.56 kg

DRUGS (1)
  1. PREMARIN [Suspect]
     Indication: HOT FLUSH
     Route: 048
     Dates: start: 20081015

REACTIONS (1)
  - ACNE [None]
